FAERS Safety Report 10625120 (Version 1)
Quarter: 2014Q4

REPORT INFORMATION
  Report Type: Spontaneous
  Country: DK (occurrence: None)
  Receive Date: 20141201
  Receipt Date: 20141201
  Transmission Date: 20150529
  Serious: Yes (Death, Life-Threatening, Other)
  Sender: FDA-Public Use
  Company Number: DK-ALKEM-000771

PATIENT
  Age: 27 Year
  Sex: Male

DRUGS (1)
  1. QUETIAPINE (QUETIAPINE) [Suspect]
     Active Substance: QUETIAPINE
     Indication: PRODUCT USED FOR UNKNOWN INDICATION

REACTIONS (7)
  - Metabolic acidosis [None]
  - Multi-organ failure [None]
  - Hypertriglyceridaemia [None]
  - Diabetes mellitus [None]
  - Duodenitis [None]
  - Pancreatitis acute [None]
  - Sepsis [None]
